FAERS Safety Report 4431580-8 (Version None)
Quarter: 2004Q3

REPORT INFORMATION
  Report Type: 
  Country: None (occurrence: None)
  Receive Date: 20040726
  Receipt Date: 20040413
  Transmission Date: 20050211
  Serious: No
  Sender: FDA-Public Use
  Company Number: US_0403101163

PATIENT
  Age: 79 Year
  Sex: Female
  Weight: 41 kg

DRUGS (4)
  1. FORTEO [Suspect]
     Indication: OSTEOPOROSIS
     Dosage: 20 UG/1 DAY
     Dates: start: 20030901
  2. FORTEO [Suspect]
     Indication: SPINAL FRACTURE
     Dosage: 20 UG/1 DAY
     Dates: start: 20030901
  3. TAGAMET [Concomitant]
  4. ALLEGRA [Concomitant]

REACTIONS (9)
  - ARTHRALGIA [None]
  - BONE PAIN [None]
  - DIZZINESS [None]
  - GAIT DISTURBANCE [None]
  - HEAD INJURY [None]
  - ORAL PAIN [None]
  - SKIN NODULE [None]
  - VITAMIN D DEFICIENCY [None]
  - WEIGHT DECREASED [None]
